FAERS Safety Report 9162211 (Version 1)
Quarter: 2013Q1

REPORT INFORMATION
  Report Type: Spontaneous
  Country: MX (occurrence: MX)
  Receive Date: 20130314
  Receipt Date: 20130314
  Transmission Date: 20140127
  Serious: Yes (Hospitalization, Other)
  Sender: FDA-Public Use
  Company Number: PHHY2013MX024617

PATIENT
  Age: 60 Year
  Sex: Female

DRUGS (6)
  1. CO-DIOVAN [Suspect]
     Indication: HYPERTENSION
     Dosage: 2 DF, (160/25 MG) DAILY
     Route: 048
     Dates: start: 201212
  2. GALVUS MET [Suspect]
     Dosage: 2 DF, DAILY
  3. NIMODIPINE [Concomitant]
     Dosage: 6 DF, DAILY
     Dates: start: 201301
  4. AMOXICILLIN/CLAVULANIC ACID [Concomitant]
     Dosage: 3 DF, DAILY
     Dates: start: 201302
  5. POTASSIUM [Concomitant]
     Dosage: 3 DF, DAILY
     Dates: start: 201302
  6. OMEPRAZOLE [Concomitant]
     Dosage: 1 DF, DAILY

REACTIONS (4)
  - Pneumonia [Recovered/Resolved]
  - Cerebrovascular disorder [Not Recovered/Not Resolved]
  - Blood glucose increased [Recovered/Resolved]
  - Head discomfort [Unknown]
